FAERS Safety Report 7548449-2 (Version None)
Quarter: 2011Q2

REPORT INFORMATION
  Report Type: 
  Country: None (occurrence: None)
  Receive Date: 20110615
  Receipt Date: 20110606
  Transmission Date: 20111010
  Serious: Yes (Hospitalization, Other)
  Sender: FDA-Public Use
  Company Number: US-BAYER-201016082NA

PATIENT
  Age: 37 Year
  Sex: Female
  Weight: 100 kg

DRUGS (8)
  1. YASMIN [Suspect]
     Indication: ORAL CONTRACEPTION
     Dosage: UNK
     Route: 048
     Dates: start: 19990101, end: 20040501
  2. BEXTRA [Concomitant]
     Dosage: UNK
     Route: 048
     Dates: start: 20040401
  3. VALTREX [Concomitant]
     Dosage: UNK
     Route: 048
     Dates: start: 20040421
  4. YAZ [Suspect]
     Route: 048
  5. YASMIN [Suspect]
     Indication: PREMENSTRUAL SYNDROME
     Route: 048
     Dates: start: 20010101, end: 20040501
  6. MOTRIN [Concomitant]
     Indication: MYALGIA
  7. PREVACID [Concomitant]
     Indication: GASTROOESOPHAGEAL REFLUX DISEASE
     Dosage: 30 MG, QD
     Dates: start: 20040421
  8. ADVIL LIQUI-GELS [Concomitant]
     Indication: MYALGIA

REACTIONS (11)
  - HEADACHE [None]
  - ATELECTASIS [None]
  - DEEP VEIN THROMBOSIS [None]
  - MYALGIA [None]
  - MUSCULOSKELETAL PAIN [None]
  - CHEST PAIN [None]
  - PULMONARY EMBOLISM [None]
  - DYSPNOEA [None]
  - PLEURAL EFFUSION [None]
  - MUSCLE SPASMS [None]
  - SINUS TACHYCARDIA [None]
